FAERS Safety Report 9373926 (Version 1)
Quarter: 2013Q2

REPORT INFORMATION
  Report Type: Spontaneous
  Country: DE (occurrence: DE)
  Receive Date: 20130628
  Receipt Date: 20130628
  Transmission Date: 20140414
  Serious: Yes (Hospitalization, Other)
  Sender: FDA-Public Use
  Company Number: DE-ROCHE-1240619

PATIENT
  Age: 50 Year
  Sex: Female

DRUGS (5)
  1. RIBAVIRIN [Suspect]
     Indication: HEPATITIS C
     Route: 065
     Dates: start: 2005
  2. PEGINTERFERON ALFA-2B [Suspect]
     Indication: HEPATITIS C
     Route: 058
     Dates: start: 2005
  3. TELAPREVIR [Suspect]
     Indication: HEPATITIS C
     Route: 065
  4. L-POLAMIDON [Concomitant]
     Route: 065
  5. INSULIN [Concomitant]
     Indication: DIABETES MELLITUS

REACTIONS (7)
  - Intracranial pressure increased [Unknown]
  - Thrombocytopenia [Recovered/Resolved]
  - Anaemia [Recovered/Resolved]
  - Leukopenia [Recovered/Resolved]
  - Oedema peripheral [Unknown]
  - No therapeutic response [Unknown]
  - Viral load increased [Unknown]
